FAERS Safety Report 11184452 (Version 1)
Quarter: 2015Q2

REPORT INFORMATION
  Report Type: Spontaneous
  Country: US (occurrence: US)
  Receive Date: 20150612
  Receipt Date: 20150612
  Transmission Date: 20150821
  Serious: Yes (Hospitalization)
  Sender: FDA-Public Use
  Company Number: US-BEH-2015051642

PATIENT
  Age: 43 Year
  Sex: Female
  Weight: 58.6 kg

DRUGS (12)
  1. DOCUSATE [Concomitant]
     Active Substance: DOCUSATE
     Dosage: 1 TAB TWICE DAILLY AS NECESSARY
     Route: 048
  2. DEXTROSE. [Concomitant]
     Active Substance: DEXTROSE
     Dosage: 5% 2-50 ML UD
     Route: 042
  3. SODIUM CHLORIDE. [Concomitant]
     Active Substance: SODIUM CHLORIDE
     Dosage: 0.9% 2-50 ML UD
     Route: 042
  4. EPIPEN [Concomitant]
     Active Substance: EPINEPHRINE
     Indication: ANAPHYLACTIC REACTION
     Dosage: 300 MCG AS NECESSARY
     Route: 030
  5. ZYRTEC [Concomitant]
     Active Substance: CETIRIZINE HYDROCHLORIDE
     Dosage: 1 TAB A DAY
     Route: 048
  6. PRIVIGEN [Suspect]
     Active Substance: HUMAN IMMUNOGLOBULIN G
     Dosage: 5 G VIALS
     Route: 042
  7. DIPHENHYDRAMINE [Concomitant]
     Active Substance: DIPHENHYDRAMINE
     Indication: ANAPHYLACTIC REACTION
     Route: 048
  8. CYCLOBENZAPRINE [Concomitant]
     Active Substance: CYCLOBENZAPRINE
     Dosage: 10 MG (1 DOSE HS)
     Route: 048
  9. MELOXICAM. [Concomitant]
     Active Substance: MELOXICAM
     Route: 048
  10. PRIVIGEN [Suspect]
     Active Substance: HUMAN IMMUNOGLOBULIN G
     Indication: CAPILLARY DISORDER
     Dosage: 10 G VIALS
     Route: 042
  11. HCD/APAP [Concomitant]
     Dosage: 10-325 MG/15 ML SOLUTION (1 DOSE EVERY 6 HOURS AS NECESSARY)
     Route: 048
  12. DAILY MULTIVITAMIN [Concomitant]
     Active Substance: VITAMINS
     Dosage: 1 DOSE UD
     Route: 048

REACTIONS (1)
  - Intervertebral disc protrusion [Unknown]

NARRATIVE: CASE EVENT DATE: 20150520
